FAERS Safety Report 7346624-3 (Version None)
Quarter: 2011Q1

REPORT INFORMATION
  Report Type: 
  Country: None (occurrence: None)
  Receive Date: 20110311
  Receipt Date: 20110302
  Transmission Date: 20110831
  Serious: Yes (Hospitalization)
  Sender: FDA-Public Use
  Company Number: NL-MEDIMMUNE-MEDI-0012683

PATIENT
  Sex: Female
  Weight: 5.55 kg

DRUGS (2)
  1. SYNAGIS [Suspect]
     Route: 030
     Dates: start: 20110214, end: 20110214
  2. SYNAGIS [Suspect]
     Route: 030
     Dates: start: 20100907, end: 20110117

REACTIONS (2)
  - GASTROINTESTINAL DISORDER [None]
  - GASTROENTERITIS VIRAL [None]
